FAERS Safety Report 24289307 (Version 1)
Quarter: 2024Q3

REPORT INFORMATION
  Report Type: Spontaneous
  Country: AT (occurrence: AT)
  Receive Date: 20240906
  Receipt Date: 20240906
  Transmission Date: 20241017
  Serious: Yes (Other)
  Sender: BRISTOL MYERS SQUIBB
  Company Number: None

PATIENT
  Age: 53 Year
  Sex: Male

DRUGS (4)
  1. ELIQUIS [Suspect]
     Active Substance: APIXABAN
     Indication: Deep vein thrombosis
     Dates: start: 201812, end: 201901
  2. ELIQUIS [Suspect]
     Active Substance: APIXABAN
     Dates: start: 201901, end: 201906
  3. ELIQUIS [Suspect]
     Active Substance: APIXABAN
     Dates: start: 201906, end: 202303
  4. ELIQUIS [Suspect]
     Active Substance: APIXABAN
     Dates: start: 202408

REACTIONS (2)
  - Dizziness [Not Recovered/Not Resolved]
  - Photosensitivity reaction [Not Recovered/Not Resolved]

NARRATIVE: CASE EVENT DATE: 20240801
